FAERS Safety Report 12480909 (Version 2)
Quarter: 2016Q3

REPORT INFORMATION
  Report Type: Report from Study
  Country: US (occurrence: US)
  Receive Date: 20160620
  Receipt Date: 20160711
  Transmission Date: 20161109
  Serious: Yes (Hospitalization)
  Sender: FDA-Public Use
  Company Number: US-JNJFOC-20160614706

PATIENT
  Age: 90 Year
  Sex: Female

DRUGS (8)
  1. LEVOTHYROXINE. [Concomitant]
     Active Substance: LEVOTHYROXINE
  2. TYLENOL [Concomitant]
     Active Substance: ACETAMINOPHEN
  3. PRAVASTATIN. [Concomitant]
     Active Substance: PRAVASTATIN
  4. IMBRUVICA [Suspect]
     Active Substance: IBRUTINIB
     Indication: WALDENSTROM^S MACROGLOBULINAEMIA
     Route: 048
     Dates: start: 20160603, end: 201606
  5. ASPIRIN. [Concomitant]
     Active Substance: ASPIRIN
  6. ISOSORBIDE. [Concomitant]
     Active Substance: ISOSORBIDE
  7. PANTOPRAZOLE [Concomitant]
     Active Substance: PANTOPRAZOLE SODIUM
  8. DULOXETINE. [Concomitant]
     Active Substance: DULOXETINE

REACTIONS (4)
  - Dehydration [Unknown]
  - Diarrhoea [Recovered/Resolved]
  - Adverse event [Unknown]
  - Labile blood pressure [Not Recovered/Not Resolved]

NARRATIVE: CASE EVENT DATE: 201606
